FAERS Safety Report 5897100-6 (Version None)
Quarter: 2008Q3

REPORT INFORMATION
  Report Type: 
  Country: None (occurrence: None)
  Receive Date: 20080924
  Receipt Date: 20080618
  Transmission Date: 20090109
  Serious: Yes (Other)
  Sender: FDA-Public Use
  Company Number: US-ASTRAZENECA-2008UW12326

PATIENT
  Age: 30 Year
  Sex: Female

DRUGS (2)
  1. SEROQUEL [Suspect]
     Dosage: 200 MG DAILY + 25-50 MG HS
     Route: 048
  2. LITHIUM CARBONATE [Concomitant]

REACTIONS (2)
  - DYSTONIA [None]
  - DYSURIA [None]
